FAERS Safety Report 5203664-8 (Version None)
Quarter: 2007Q1

REPORT INFORMATION
  Report Type: 
  Country: None (occurrence: None)
  Receive Date: 20070110
  Receipt Date: 20070102
  Transmission Date: 20070707
  Serious: Yes (Hospitalization, Other)
  Sender: FDA-Public Use
  Company Number: PHEH2006US07835

PATIENT
  Age: 57 Year
  Sex: Male
  Weight: 78.004 kg

DRUGS (20)
  1. GLEEVEC [Suspect]
     Indication: CHRONIC MYELOID LEUKAEMIA
     Dosage: 400 MG, QD
     Route: 048
     Dates: start: 20060201, end: 20060425
  2. GLEEVEC [Suspect]
     Dosage: UNK, NO TREATMENT
     Dates: start: 20060425, end: 20060530
  3. GLEEVEC [Suspect]
     Dosage: 300 MG, QD
     Route: 048
     Dates: start: 20060530, end: 20060620
  4. GLEEVEC [Suspect]
     Dosage: UNK, NO TREATMENT
     Route: 048
     Dates: start: 20060620, end: 20060710
  5. GLEEVEC [Suspect]
     Dosage: 300 MG, QD
     Route: 048
     Dates: start: 20060710
  6. GLEEVEC [Suspect]
     Dosage: 400 MG, QD
     Route: 048
     Dates: start: 20060712
  7. TRIZIVIR [Suspect]
     Indication: HIV INFECTION
     Dosage: 1 DF, BID
     Route: 048
     Dates: start: 20050608, end: 20060612
  8. KALETRA [Suspect]
     Indication: HIV INFECTION
     Dosage: 3 DF, BID
     Route: 048
     Dates: end: 20060612
  9. CARDIZEM [Concomitant]
     Indication: CORONARY ARTERY DISEASE
     Dosage: 60 MG, QD
     Route: 048
     Dates: start: 20020101
  10. NITROGLYCERIN ^PHARMACIA + UPJOHN^ [Concomitant]
     Dosage: UNK, PRN
  11. PROCRIT [Concomitant]
     Indication: ANAEMIA OF CHRONIC DISEASE
     Dosage: 400000 IU, QW
     Route: 058
     Dates: start: 20060310, end: 20060523
  12. PROCRIT [Concomitant]
     Dosage: 800000 IU, QW
     Route: 058
     Dates: start: 20060523, end: 20060531
  13. PROCRIT [Concomitant]
     Dosage: 40000 IU, UNK
     Route: 058
     Dates: end: 20060606
  14. PROCRIT [Concomitant]
     Route: 058
  15. TOPROL-XL [Concomitant]
     Indication: CORONARY ARTERY DISEASE
     Dosage: 50 MG, QD
     Route: 048
  16. METFORMIN HCL [Concomitant]
     Indication: DIABETES MELLITUS
     Dosage: 500 MG, BID
     Route: 048
  17. ALTACE [Concomitant]
     Indication: CORONARY ARTERY DISEASE
     Dosage: 10 MG, QD
     Route: 048
  18. ASPIRIN [Concomitant]
     Indication: CORONARY ARTERY DISEASE
     Dosage: 81 MG, QD
     Route: 048
  19. METHADONE HCL [Concomitant]
     Indication: DRUG ABUSER
     Dosage: 10 MG, QD
     Route: 048
  20. SUSTIVA [Concomitant]
     Indication: HIV INFECTION
     Route: 048
     Dates: start: 20060101

REACTIONS (4)
  - ANAEMIA [None]
  - BONE MARROW FAILURE [None]
  - DRUG INTERACTION [None]
  - HAEMOGLOBIN DECREASED [None]
